FAERS Safety Report 10128404 (Version 2)
Quarter: 2014Q2

REPORT INFORMATION
  Report Type: Spontaneous
  Country: US (occurrence: US)
  Receive Date: 20140428
  Receipt Date: 20140501
  Transmission Date: 20141212
  Serious: Yes (Hospitalization)
  Sender: FDA-Public Use
  Company Number: US-009507513-1404USA011890

PATIENT
  Age: 11 Year
  Sex: Female

DRUGS (3)
  1. DULERA [Suspect]
     Indication: ASTHMA
     Dosage: 200MCG/5MCG, TWO INHALATIONS, BID
     Route: 055
     Dates: start: 2009
  2. INTUNIV [Concomitant]
     Dosage: 2 MG, ONCE DAILY
  3. CYPROHEPTADINE HYDROCHLORIDE [Concomitant]
     Dosage: 4 MG, ONCE DAILY
     Route: 048

REACTIONS (8)
  - Asthma [Recovering/Resolving]
  - Asthma [Recovering/Resolving]
  - Drug dose omission [Unknown]
  - Product quality issue [Unknown]
  - Drug administered to patient of inappropriate age [Unknown]
  - Drug dose omission [Unknown]
  - Asthma [Unknown]
  - Product quality issue [Unknown]
